FAERS Safety Report 7584928-X (Version None)
Quarter: 2011Q2

REPORT INFORMATION
  Report Type: 
  Country: None (occurrence: None)
  Receive Date: 20110630
  Receipt Date: 20081017
  Transmission Date: 20111010
  Serious: Yes (Death, Other)
  Sender: FDA-Public Use
  Company Number: US-BAYER-200827679NA

PATIENT
  Age: 60 Year
  Sex: Male
  Weight: 92.727 kg

DRUGS (57)
  1. MAGNEVIST [Suspect]
     Indication: ANGIOGRAM
     Dosage: UNK UNK, ONCE
     Dates: start: 20031129, end: 20031129
  2. EPOGEN [Concomitant]
     Dosage: AS OF ??-SEP-2007; PER TREATMENT DUE TO MALIGNANCY - AS USED DOSE: 35,000 U
  3. SENOKOT [Concomitant]
  4. LACHYDRIN [LACTIC ACID] [Concomitant]
     Dosage: TO LEGS; AS OF 10-NOV-2006
     Route: 061
  5. ATIVAN [Concomitant]
  6. COMPAZINE [Concomitant]
  7. ZOCOR [Concomitant]
  8. PRAVACHOL [Concomitant]
  9. KAYEXALATE [Concomitant]
  10. BLOOD TRANSFUSION, AUXILIARY PRODUCTS [Concomitant]
     Indication: HAEMOGLOBIN ABNORMAL
  11. LACLOTION [Concomitant]
  12. GABAPENTIN [Concomitant]
  13. PRAVASTATIN [Concomitant]
  14. THALIDOMIDE [Concomitant]
  15. RENAGEL [Concomitant]
     Dosage: 1-2 PIECES
     Dates: start: 20070903
  16. ISOSORBIDE [Concomitant]
  17. MAGNEVIST [Suspect]
     Dosage: UNK UNK, ONCE
     Dates: start: 20060128, end: 20060128
  18. MAGNEVIST [Suspect]
     Dosage: UNK UNK, ONCE
     Dates: start: 20060801, end: 20060801
  19. MAGNEVIST [Suspect]
     Dosage: UNK
     Dates: start: 20050321, end: 20050321
  20. MAGNEVIST [Suspect]
     Dosage: UNK
     Dates: start: 20071024, end: 20071024
  21. CHEMOTHERAPEUTICS NOS [Concomitant]
     Indication: MULTIPLE MYELOMA
  22. ROXANOL [Concomitant]
  23. PLAVIX [Concomitant]
  24. MEVACOR [Concomitant]
  25. MAGNEVIST [Suspect]
     Indication: NUCLEAR MAGNETIC RESONANCE IMAGING
     Dosage: UNK UNK, ONCE
     Dates: start: 20050314, end: 20050314
  26. LYRICA [Concomitant]
  27. ACETAMINOPHEN [Concomitant]
  28. ZOLPIDEM [Concomitant]
  29. DEXAMETHASONE [Concomitant]
  30. COREG [Concomitant]
  31. FLOMAX [Concomitant]
  32. ACYCLOVIR [Concomitant]
  33. ZOMETA [Concomitant]
  34. MAGNEVIST [Suspect]
     Indication: NUCLEAR MAGNETIC RESONANCE IMAGING BRAIN
     Dosage: UNK UNK, ONCE
     Dates: start: 20051013, end: 20051013
  35. GADOLINIUM IN UNSPECIFIED DRUG [Suspect]
     Indication: NUCLEAR MAGNETIC RESONANCE IMAGING BRAIN
     Dosage: UNK
     Dates: start: 20020724, end: 20020724
  36. GADOLINIUM IN UNSPECIFIED DRUG [Suspect]
  37. LISINOPRIL [Concomitant]
  38. AVELOX [Concomitant]
  39. FUROSEMIDE [Concomitant]
  40. NEXIUM [Concomitant]
  41. SENSIPAR [Concomitant]
  42. ANTINEOPLASTIC AND IMMUNOMODULATING AGENTS [Concomitant]
  43. LIPITOR [Concomitant]
  44. MAGNEVIST [Suspect]
  45. GADOLINIUM IN UNSPECIFIED DRUG [Suspect]
     Indication: NUCLEAR MAGNETIC RESONANCE IMAGING
     Dosage: UNK
     Dates: start: 20031022, end: 20031022
  46. EPOGEN [Concomitant]
     Dosage: AS OF 18-SEP-2006 - AS USED DOSE: 20,000 U
  47. GLEEVEC [Concomitant]
     Dosage: AS OF 10-SEP-2007
  48. OMEPRAZOLE [Concomitant]
  49. LIDODERM [Concomitant]
  50. NITROGLYCERIN [Concomitant]
  51. PHOSLO [Concomitant]
     Dosage: 2-3 PCS WITH MEALS AND SNACKS
  52. NORVASC [Concomitant]
  53. ATENOLOL [Concomitant]
  54. LASIX [Concomitant]
  55. RAMIPRIL [Concomitant]
  56. COUMADIN [Concomitant]
  57. RENAGEL [Concomitant]

REACTIONS (35)
  - NEPHROGENIC SYSTEMIC FIBROSIS [None]
  - MOBILITY DECREASED [None]
  - SKIN HYPERTROPHY [None]
  - DRY SKIN [None]
  - MOTOR DYSFUNCTION [None]
  - HAEMODIALYSIS [None]
  - PRURITUS [None]
  - ARTHRALGIA [None]
  - VISUAL IMPAIRMENT [None]
  - HAEMORRHOIDS [None]
  - FOREARM FRACTURE [None]
  - CELLULITIS [None]
  - FIBROSIS [None]
  - MUSCLE SPASMS [None]
  - PANCYTOPENIA [None]
  - PULMONARY FIBROSIS [None]
  - SKIN DISCOLOURATION [None]
  - PATHOLOGICAL FRACTURE [None]
  - HAEMATOCHEZIA [None]
  - PAIN [None]
  - HYPOAESTHESIA [None]
  - MUSCLE ATROPHY [None]
  - REFLUX OESOPHAGITIS [None]
  - INJURY [None]
  - MYALGIA [None]
  - SKIN TIGHTNESS [None]
  - ANXIETY [None]
  - OEDEMA PERIPHERAL [None]
  - BURNING SENSATION [None]
  - GAIT DISTURBANCE [None]
  - PAIN IN EXTREMITY [None]
  - ERYTHEMA [None]
  - JOINT DESTRUCTION [None]
  - MULTIPLE INJURIES [None]
  - NEUROPATHY PERIPHERAL [None]
